FAERS Safety Report 5675261-1 (Version None)
Quarter: 2008Q1

REPORT INFORMATION
  Report Type: 
  Country: None (occurrence: None)
  Receive Date: 20080320
  Receipt Date: 20080310
  Transmission Date: 20080703
  Serious: Yes (Hospitalization, Other)
  Sender: FDA-Public Use
  Company Number: US-ELI_LILLY_AND_COMPANY-US200803002116

PATIENT
  Sex: Female

DRUGS (10)
  1. FORTEO [Suspect]
     Indication: OSTEOPOROSIS
     Dosage: UNK, UNK
     Dates: start: 20071011
  2. PLAVIX [Concomitant]
  3. CRESTOR [Concomitant]
  4. ASPIRIN [Concomitant]
  5. NIASPAN [Concomitant]
  6. PROPOXYPHENE HYDROCHLORIDE [Concomitant]
  7. LEVAQUIN [Concomitant]
  8. FLAGYL [Concomitant]
  9. OMEPRAZOLE [Concomitant]
  10. DOCIRETIC [Concomitant]

REACTIONS (3)
  - BLOOD PRESSURE INCREASED [None]
  - CORONARY ARTERY BYPASS [None]
  - URINARY TRACT INFECTION [None]
